FAERS Safety Report 13578229 (Version 2)
Quarter: 2017Q2

REPORT INFORMATION
  Report Type: Spontaneous
  Country: US (occurrence: US)
  Receive Date: 20170524
  Receipt Date: 20170609
  Transmission Date: 20170830
  Serious: No
  Sender: FDA-Public Use
  Company Number: US-TAIHO ONCOLOGY INC-EU-2017-00799

PATIENT
  Sex: Male
  Weight: 74.91 kg

DRUGS (17)
  1. COLACE [Concomitant]
     Active Substance: DOCUSATE SODIUM
     Dosage: NI
  2. OMEPRAZOLE. [Concomitant]
     Active Substance: OMEPRAZOLE
     Dosage: NI
  3. THIOCTIC ACID [Concomitant]
     Active Substance: THIOCTIC ACID
     Dosage: NI
  4. COMPAZINE [Concomitant]
     Active Substance: PROCHLORPERAZINE MALEATE
     Dosage: NI
  5. LONSURF [Suspect]
     Active Substance: TIPIRACIL HYDROCHLORIDE\TRIFLURIDINE
     Indication: COLON CANCER
     Dosage: CYCLE 1
     Route: 048
     Dates: start: 20170425
  6. VITIS VINIFERA SEED [Concomitant]
     Dosage: NI
  7. LORAZEPAM. [Concomitant]
     Active Substance: LORAZEPAM
     Dosage: NI
  8. FENTANYL. [Concomitant]
     Active Substance: FENTANYL
     Dosage: NI
  9. FISH OIL [Concomitant]
     Active Substance: FISH OIL
     Dosage: NI
  10. PROVENTIL [Concomitant]
     Active Substance: ALBUTEROL
     Dosage: NI
  11. CELEXA [Concomitant]
     Active Substance: CITALOPRAM HYDROBROMIDE
     Dosage: NI
  12. CALCIUM [Concomitant]
     Active Substance: CALCIUM
     Dosage: NI
  13. ASCORBIC ACID. [Concomitant]
     Active Substance: ASCORBIC ACID
     Dosage: NI
  14. GABAPENTIN. [Concomitant]
     Active Substance: GABAPENTIN
     Dosage: NI
  15. OXYCODONE [Concomitant]
     Active Substance: OXYCODONE
     Dosage: NI
  16. VIAGRA [Concomitant]
     Active Substance: SILDENAFIL CITRATE
     Dosage: NI
  17. SENNA [Concomitant]
     Active Substance: SENNA LEAF\SENNOSIDES\SENNOSIDES A AND B
     Dosage: NI

REACTIONS (3)
  - Nausea [Recovering/Resolving]
  - Asthenia [Recovering/Resolving]
  - Fatigue [Recovering/Resolving]

NARRATIVE: CASE EVENT DATE: 2017
